FAERS Safety Report 5704144-3 (Version None)
Quarter: 2008Q2

REPORT INFORMATION
  Report Type: 
  Country: None (occurrence: None)
  Receive Date: 20080414
  Receipt Date: 20080414
  Transmission Date: 20081010
  Serious: Yes (Death)
  Sender: FDA-Public Use
  Company Number: None

PATIENT
  Age: 68 Year
  Sex: Female
  Weight: 70.3075 kg

DRUGS (1)
  1. HEPARIN [Suspect]
     Indication: HEART VALVE REPLACEMENT
     Dates: start: 20070404, end: 20070408

REACTIONS (8)
  - ARRHYTHMIA [None]
  - BLOOD PRESSURE DECREASED [None]
  - DIALYSIS [None]
  - DRUG SPECIFIC ANTIBODY PRESENT [None]
  - GANGRENE [None]
  - NAUSEA [None]
  - OEDEMA PERIPHERAL [None]
  - RENAL FAILURE [None]
